FAERS Safety Report 5465189-4 (Version None)
Quarter: 2007Q3

REPORT INFORMATION
  Report Type: 
  Country: None (occurrence: None)
  Receive Date: 20070924
  Receipt Date: 20070917
  Transmission Date: 20080115
  Serious: Yes (Hospitalization)
  Sender: FDA-Public Use
  Company Number: NP-JNJFOC-20070903383

PATIENT
  Age: 12 Year
  Sex: Male

DRUGS (4)
  1. CHILDREN'S IBUPROFEN [Suspect]
     Dosage: 5MG/KG
     Route: 048
  2. CHILDREN'S IBUPROFEN [Suspect]
     Indication: ANTIPYRESIS
     Dosage: UNKNOWN
     Route: 048
  3. CHILDREN'S PARACETAMOL [Suspect]
  4. CHILDREN'S PARACETAMOL [Suspect]
     Indication: DRUG USE FOR UNKNOWN INDICATION
     Dosage: UNKNOWN

REACTIONS (3)
  - ANAPHYLACTIC REACTION [None]
  - ANGIOEDEMA [None]
  - URTICARIA [None]
